FAERS Safety Report 7274822-6 (Version None)
Quarter: 2011Q1

REPORT INFORMATION
  Report Type: 
  Country: None (occurrence: None)
  Receive Date: 20110204
  Receipt Date: 20110126
  Transmission Date: 20110831
  Serious: Yes (Hospitalization)
  Sender: FDA-Public Use
  Company Number: GB-JNJFOC-20101001043

PATIENT
  Sex: Female

DRUGS (3)
  1. REMICADE [Suspect]
     Indication: CROHN'S DISEASE
     Route: 042
  2. HYDROCORTISONE [Concomitant]
     Indication: PREMEDICATION
  3. REMICADE [Suspect]
     Route: 042

REACTIONS (4)
  - MYALGIA [None]
  - PYREXIA [None]
  - C-REACTIVE PROTEIN INCREASED [None]
  - ARTHRALGIA [None]
